FAERS Safety Report 4392171-0 (Version None)
Quarter: 2004Q3

REPORT INFORMATION
  Report Type: 
  Country: None (occurrence: None)
  Receive Date: 20040702
  Receipt Date: 20040329
  Transmission Date: 20050211
  Serious: Yes (Other)
  Sender: FDA-Public Use
  Company Number: 2004UW06103

PATIENT
  Age: 50 Year
  Sex: Female
  Weight: 104.3273 kg

DRUGS (11)
  1. CRESTOR [Suspect]
     Indication: BLOOD CHOLESTEROL INCREASED
     Dosage: NI
     Dates: start: 20040201, end: 20040324
  2. TEGRETOL [Concomitant]
  3. CLONAZEPAM [Concomitant]
  4. HUMALOG [Concomitant]
  5. AMARYL [Concomitant]
  6. AVANDIA [Concomitant]
  7. HYZAAR [Concomitant]
  8. EFFEXOR [Concomitant]
  9. FUROSEMIDE [Concomitant]
  10. MULTIVITAMIN [Concomitant]
  11. ASPIRIN [Concomitant]

REACTIONS (1)
  - HYPOAESTHESIA [None]
